FAERS Safety Report 7662943-5 (Version None)
Quarter: 2011Q3

REPORT INFORMATION
  Report Type: 
  Country: None (occurrence: None)
  Receive Date: 20110805
  Receipt Date: 20100920
  Transmission Date: 20111222
  Serious: Yes (Hospitalization)
  Sender: FDA-Public Use
  Company Number: US-ABBOTT-10P-163-0672024-00

PATIENT
  Age: 60 Year
  Sex: Female

DRUGS (2)
  1. UNKNOWN DIABETIC MEDICATION [Concomitant]
     Indication: PRODUCT USED FOR UNKNOWN INDICATION
  2. NIASPAN [Suspect]
     Indication: CORONARY ARTERIAL STENT INSERTION

REACTIONS (2)
  - PRURITUS [None]
  - RASH GENERALISED [None]
